FAERS Safety Report 5596169-6 (Version None)
Quarter: 2007Q4

REPORT INFORMATION
  Report Type: 
  Country: None (occurrence: None)
  Receive Date: 20071218
  Receipt Date: 20061229
  Transmission Date: 20080405
  Serious: Yes (Hospitalization, Other)
  Sender: FDA-Public Use
  Company Number: 2006085428

PATIENT
  Age: 72 Year
  Sex: Male
  Weight: 77.1 kg

DRUGS (2)
  1. BEXTRA [Suspect]
     Indication: ARTHRITIS
     Dosage: (10 MG,AS NECESSARY),ORAL
     Route: 048
     Dates: start: 20021001, end: 20040301
  2. VIOXX [Suspect]
     Dosage: ORAL
     Route: 048

REACTIONS (1)
  - MYOCARDIAL INFARCTION [None]
